FAERS Safety Report 8501825-3 (Version None)
Quarter: 2012Q3

REPORT INFORMATION
  Report Type: 
  Country: None (occurrence: None)
  Receive Date: 20120705
  Receipt Date: 20120705
  Transmission Date: 20120928
  Serious: Yes (Congenital Anomaly)
  Sender: FDA-Public Use
  Company Number: None

PATIENT
  Sex: Female
  Weight: 2.7216 kg

DRUGS (2)
  1. ABILIFY [Suspect]
     Indication: DEPRESSION
     Dosage: 1MG, 5 MG AS NEEDED PO
     Route: 048
     Dates: start: 20110101, end: 20110801
  2. ABILIFY [Suspect]
     Indication: DYSTHYMIC DISORDER
     Dosage: 1MG, 5 MG AS NEEDED PO
     Route: 048
     Dates: start: 20110101, end: 20110801

REACTIONS (2)
  - CONGENITAL TORTICOLLIS [None]
  - MATERNAL DRUGS AFFECTING FOETUS [None]
